FAERS Safety Report 14321653 (Version 2)
Quarter: 2018Q1

REPORT INFORMATION
  Report Type: Report from Study
  Country: MX (occurrence: MX)
  Receive Date: 20171224
  Receipt Date: 20180105
  Transmission Date: 20180509
  Serious: Yes (Death)
  Sender: FDA-Public Use
  Company Number: PHHY2017MX189958

PATIENT
  Age: 87 Year
  Sex: Female

DRUGS (1)
  1. ENTRESTO [Suspect]
     Active Substance: SACUBITRIL\VALSARTAN
     Indication: CARDIAC FAILURE
     Dosage: 50 MG, UNK
     Route: 048
     Dates: start: 201710, end: 20171120

REACTIONS (1)
  - Death [Fatal]

NARRATIVE: CASE EVENT DATE: 20171124
